FAERS Safety Report 13395092 (Version 1)
Quarter: 2017Q2

REPORT INFORMATION
  Report Type: Report from Study
  Country: FR (occurrence: FR)
  Receive Date: 20170403
  Receipt Date: 20170403
  Transmission Date: 20170830
  Serious: Yes (Other)
  Sender: FDA-Public Use
  Company Number: FR-ROCHE-1910074

PATIENT

DRUGS (3)
  1. FLUOROURACIL. [Suspect]
     Active Substance: FLUOROURACIL
     Indication: RECTAL ADENOCARCINOMA
     Route: 065
  2. FOLINIC ACID [Suspect]
     Active Substance: LEUCOVORIN
     Indication: RECTAL ADENOCARCINOMA
     Route: 065
  3. CAPECITABINE. [Suspect]
     Active Substance: CAPECITABINE
     Indication: RECTAL ADENOCARCINOMA
     Dosage: ON RADIATION DAYS.
     Route: 065

REACTIONS (9)
  - Diarrhoea [Recovered/Resolved]
  - Ill-defined disorder [Recovered/Resolved]
  - Radiation proctitis [Unknown]
  - Anal incontinence [Recovered/Resolved]
  - Abnormal faeces [Recovered/Resolved]
  - Constipation [Recovered/Resolved]
  - Rectal haemorrhage [Unknown]
  - Haemorrhage [Unknown]
  - Proctitis [Recovered/Resolved]
